FAERS Safety Report 9235943 (Version 1)
Quarter: 2013Q1

REPORT INFORMATION
  Report Type: Spontaneous
  Country: AU (occurrence: None)
  Receive Date: 20130329
  Receipt Date: 20130329
  Transmission Date: 20140127
  Serious: Yes (Other)
  Sender: FDA-Public Use
  Company Number: GAM-063-13-AU

PATIENT
  Age: 53 Year
  Sex: 0

DRUGS (1)
  1. OCTAGAM 5 (HUMAN NORMAL IMMUNOGLOBULIN FOR INTRAVENOUS ADMINISTRATION) [Suspect]
     Indication: MULTIFOCAL MOTOR NEUROPATHY
     Dosage: CYCLICAL
     Route: 042

REACTIONS (6)
  - Headache [None]
  - Speech disorder [None]
  - Dysphagia [None]
  - Lethargy [None]
  - Muscular weakness [None]
  - Sinus tachycardia [None]
